FAERS Safety Report 24584155 (Version 1)
Quarter: 2024Q4

REPORT INFORMATION
  Report Type: Spontaneous
  Country: CH (occurrence: CH)
  Receive Date: 20241106
  Receipt Date: 20241106
  Transmission Date: 20250115
  Serious: Yes (Other)
  Sender: CHEPLAPHARM
  Company Number: None

PATIENT
  Age: 95 Year
  Sex: Female

DRUGS (16)
  1. CLONAZEPAM [Interacting]
     Active Substance: CLONAZEPAM
     Indication: Clonus
     Dosage: DAILY DOSE: 0.5 MILLIGRAM
     Dates: start: 20240703, end: 20240703
  2. NIFEDIPINE [Interacting]
     Active Substance: NIFEDIPINE
     Dosage: DAILY DOSE: 20 MILLIGRAM
  3. CALCIPARINE [Concomitant]
     Active Substance: HEPARIN CALCIUM
  4. LANTUS [Concomitant]
     Active Substance: INSULIN GLARGINE
  5. EUTHYROX [Concomitant]
     Active Substance: LEVOTHYROXINE SODIUM
  6. CLOPIDOGREL [Concomitant]
     Active Substance: CLOPIDOGREL BISULFATE
  7. METOPROLOL [Concomitant]
     Active Substance: METOPROLOL
  8. ENTRESTO [Concomitant]
     Active Substance: SACUBITRIL\VALSARTAN
  9. TORSEMIDE [Concomitant]
     Active Substance: TORSEMIDE
  10. NEXIUM [Concomitant]
     Active Substance: ESOMEPRAZOLE MAGNESIUM
  11. FOLIC ACID [Concomitant]
     Active Substance: FOLIC ACID
  12. NOVORAPID [Concomitant]
     Active Substance: INSULIN ASPART
     Dosage: DEPENDING ON BLOOD SUGAR LEVELS
  13. ALBUTEROL SULFATE\IPRATROPIUM BROMIDE [Concomitant]
     Active Substance: ALBUTEROL SULFATE\IPRATROPIUM BROMIDE
  14. Paspertin [Concomitant]
  15. ACETAMINOPHEN [Concomitant]
     Active Substance: ACETAMINOPHEN
  16. Redormin [Concomitant]
     Dosage: 1X/DAY MAX

REACTIONS (4)
  - Altered state of consciousness [Recovered/Resolved]
  - Miosis [Recovered/Resolved]
  - Pupillary light reflex tests abnormal [Recovered/Resolved]
  - Inhibitory drug interaction [Recovered/Resolved]

NARRATIVE: CASE EVENT DATE: 20240703
